FAERS Safety Report 7177230-1 (Version None)
Quarter: 2010Q4

REPORT INFORMATION
  Report Type: 
  Country: None (occurrence: None)
  Receive Date: 20101123
  Receipt Date: 20100803
  Transmission Date: 20110411
  Serious: No
  Sender: FDA-Public Use
  Company Number: 016718

PATIENT
  Sex: Female

DRUGS (2)
  1. CIMZIA [Suspect]
     Dosage: UNSPECIFIED SUBCUTANEOUS
     Route: 058
  2. BACTRIM [Suspect]

REACTIONS (1)
  - RASH [None]
